FAERS Safety Report 5306384-4 (Version None)
Quarter: 2007Q2

REPORT INFORMATION
  Report Type: 
  Country: None (occurrence: None)
  Receive Date: 20070417
  Receipt Date: 20070404
  Transmission Date: 20071010
  Serious: Yes (Hospitalization, Disabling)
  Sender: FDA-Public Use
  Company Number: WAES 0704USA00581

PATIENT
  Age: 73 Year
  Sex: Male
  Weight: 79.8331 kg

DRUGS (10)
  1. CAP VORINOSTAT 100 MG [Suspect]
     Indication: MESOTHELIOMA
     Dosage: 300 MG/DAILY/PO
     Route: 048
     Dates: start: 20070326, end: 20070329
  2. POWD PEMETREXED DISODIUM UNK [Suspect]
     Indication: MESOTHELIOMA
     Dosage: 950 MG/DAILY/IV
     Route: 042
     Dates: start: 20070328, end: 20070328
  3. DECADRON [Concomitant]
  4. BETA CAROTENE [Concomitant]
  5. FOLIC ACID [Concomitant]
  6. HYDROCODONE BITARTRATE [Concomitant]
  7. IBUPROFEN [Concomitant]
  8. LORAZEPAM [Concomitant]
  9. METOPROLOL SUCCINATE [Concomitant]
  10. POTASIUM (UNSPECIFIED) [Concomitant]

REACTIONS (12)
  - ABDOMINAL DISCOMFORT [None]
  - ATELECTASIS [None]
  - ATRIAL FIBRILLATION [None]
  - CONDITION AGGRAVATED [None]
  - CONVULSION [None]
  - DEAFNESS [None]
  - FLUSHING [None]
  - LOSS OF CONSCIOUSNESS [None]
  - NAUSEA [None]
  - REFUSAL OF TREATMENT BY PATIENT [None]
  - TREMOR [None]
  - WHITE BLOOD CELL COUNT INCREASED [None]
